FAERS Safety Report 19738988 (Version 1)
Quarter: 2021Q3

REPORT INFORMATION
  Report Type: Spontaneous
  Country: FR (occurrence: FR)
  Receive Date: 20210823
  Receipt Date: 20210823
  Transmission Date: 20211014
  Serious: Yes (Hospitalization)
  Sender: FDA-Public Use
  Company Number: FR-PFIZER INC-2021598524

PATIENT
  Age: 50 Year
  Sex: Male

DRUGS (1)
  1. TOVIAZ [Suspect]
     Active Substance: FESOTERODINE FUMARATE
     Dosage: 8 MG
     Dates: start: 202105

REACTIONS (5)
  - Dizziness [Unknown]
  - Tonsillar inflammation [Unknown]
  - Oropharyngeal pain [Unknown]
  - Dry mouth [Unknown]
  - Tonsillitis [Unknown]

NARRATIVE: CASE EVENT DATE: 202105
